FAERS Safety Report 6814905-5 (Version None)
Quarter: 2010Q3

REPORT INFORMATION
  Report Type: 
  Country: None (occurrence: None)
  Receive Date: 20100701
  Receipt Date: 20100701
  Transmission Date: 20110219
  Serious: No
  Sender: FDA-Public Use
  Company Number: None

PATIENT
  Age: 76 Year
  Sex: Male
  Weight: 86.637 kg

DRUGS (1)
  1. ARAVA [Suspect]
     Dosage: 10 MG 1 DAILY

REACTIONS (4)
  - GAIT DISTURBANCE [None]
  - NO THERAPEUTIC RESPONSE [None]
  - PAIN [None]
  - PAIN IN EXTREMITY [None]
